FAERS Safety Report 6092766-2 (Version None)
Quarter: 2009Q1

REPORT INFORMATION
  Report Type: 
  Country: None (occurrence: None)
  Receive Date: 20090225
  Receipt Date: 20090220
  Transmission Date: 20090719
  Serious: Yes (Life-Threatening, Hospitalization)
  Sender: FDA-Public Use
  Company Number: FR-WYE-G03164009

PATIENT
  Sex: Female

DRUGS (3)
  1. EFFEXOR [Suspect]
     Dosage: OVERDOSE AMOUNT = 2250 MG
     Route: 048
     Dates: start: 20090118, end: 20090118
  2. ALCOHOL [Suspect]
     Dosage: OVERDOSE AMOUNT = UNKNOWN
     Route: 048
     Dates: start: 20090118, end: 20090118
  3. ALPRAZOLAM [Suspect]
     Dosage: OVERDOSE AMOUNT =  10 MG
     Route: 048
     Dates: start: 20090118, end: 20090118

REACTIONS (8)
  - DRUG TOXICITY [None]
  - HYPERCAPNIA [None]
  - HYPERTONIA [None]
  - HYPOVENTILATION [None]
  - HYPOXIA [None]
  - INTENTIONAL OVERDOSE [None]
  - RESPIRATORY ACIDOSIS [None]
  - SOMNOLENCE [None]
